FAERS Safety Report 6464377-8 (Version None)
Quarter: 2009Q4

REPORT INFORMATION
  Report Type: 
  Country: None (occurrence: None)
  Receive Date: 20091130
  Receipt Date: 20091130
  Transmission Date: 20100525
  Serious: Yes (Other)
  Sender: FDA-Public Use
  Company Number: None

PATIENT
  Sex: Male
  Weight: 95.2554 kg

DRUGS (3)
  1. NITROGLYCERIN [Suspect]
     Indication: ANGINA PECTORIS
     Dosage: 0.4MG Q5 MIN. PRN CP SL
     Route: 060
     Dates: start: 20091112, end: 20091128
  2. NITROGLYCERIN [Suspect]
     Indication: ANGIOPLASTY
     Dosage: 0.4MG Q5 MIN. PRN CP SL
     Route: 060
     Dates: start: 20091112, end: 20091128
  3. NITROGLYCERIN [Suspect]
     Indication: POST PROCEDURAL COMPLICATION
     Dosage: 0.4MG Q5 MIN. PRN CP SL
     Route: 060
     Dates: start: 20091112, end: 20091128

REACTIONS (2)
  - DRUG EFFECT DECREASED [None]
  - PRODUCT SOLUBILITY ABNORMAL [None]
